FAERS Safety Report 8195514-5 (Version None)
Quarter: 2012Q1

REPORT INFORMATION
  Report Type: 
  Country: None (occurrence: None)
  Receive Date: 20120308
  Receipt Date: 20120227
  Transmission Date: 20120608
  Serious: Yes (Death, Hospitalization)
  Sender: FDA-Public Use
  Company Number: US-BAXTER-2012BH000074

PATIENT
  Age: 83 Year
  Sex: Female

DRUGS (1)
  1. DIANEAL [Suspect]
     Indication: PERITONEAL DIALYSIS
     Route: 033
     Dates: end: 20120226

REACTIONS (6)
  - HIP FRACTURE [None]
  - FALL [None]
  - DEATH [None]
  - DIET REFUSAL [None]
  - DEEP VEIN THROMBOSIS [None]
  - REFUSAL OF TREATMENT BY PATIENT [None]
